FAERS Safety Report 15585868 (Version 1)
Quarter: 2018Q4

REPORT INFORMATION
  Report Type: Spontaneous
  Country: US (occurrence: US)
  Receive Date: 20181105
  Receipt Date: 20181105
  Transmission Date: 20190205
  Serious: No
  Sender: FDA-Public Use
  Company Number: US-009507513-1811USA000748

PATIENT
  Age: 74 Year
  Sex: Female

DRUGS (2)
  1. DULERA [Suspect]
     Active Substance: FORMOTEROL FUMARATE DIHYDRATE\MOMETASONE FUROATE
     Dosage: UNK, TWICE DAILY
     Route: 055
  2. RANOLAZINE HYDROCHLORIDE [Suspect]
     Active Substance: RANOLAZINE HYDROCHLORIDE
     Indication: ANGINA PECTORIS
     Dosage: 500 MILLIGRAM, BID
     Route: 048
     Dates: start: 2017

REACTIONS (2)
  - Contraindicated product administered [Unknown]
  - Cough [Not Recovered/Not Resolved]
